FAERS Safety Report 9612532 (Version 2)
Quarter: 2013Q4

REPORT INFORMATION
  Report Type: Spontaneous
  Country: ES (occurrence: ES)
  Receive Date: 20131010
  Receipt Date: 20131011
  Transmission Date: 20140711
  Serious: Yes (Hospitalization)
  Sender: FDA-Public Use
  Company Number: ES-PFIZER INC-2013289680

PATIENT
  Age: 83 Year
  Sex: Male

DRUGS (4)
  1. TAZOCEL [Suspect]
     Indication: URINARY TRACT INFECTION
     Dosage: 4 G, 4X/DAY
     Route: 042
     Dates: start: 20130307, end: 20130312
  2. CLEXANE [Interacting]
     Indication: ATRIAL FIBRILLATION
     Dosage: 60 MG, 2X/DAY
     Route: 058
     Dates: start: 20130307
  3. INSULIN GLARGINE [Concomitant]
     Indication: TYPE 2 DIABETES MELLITUS
     Dosage: 10 IU, DAILY
     Route: 058
     Dates: start: 20130307
  4. ENALAPRIL [Concomitant]
     Indication: HYPERTENSION
     Dosage: 5 MG, 2X/DAY
     Route: 048
     Dates: start: 2009

REACTIONS (3)
  - Drug interaction [Recovered/Resolved]
  - Haematuria [Recovered/Resolved]
  - Hypocoagulable state [Recovered/Resolved]
